FAERS Safety Report 5432207-9 (Version None)
Quarter: 2007Q3

REPORT INFORMATION
  Report Type: 
  Country: None (occurrence: None)
  Receive Date: 20070830
  Receipt Date: 20070821
  Transmission Date: 20080115
  Serious: Yes (Other)
  Sender: FDA-Public Use
  Company Number: DE-PFIZER INC-2007063360

PATIENT
  Sex: Male
  Weight: 72 kg

DRUGS (5)
  1. SORTIS [Suspect]
     Indication: CORONARY ARTERY DISEASE
     Route: 048
  2. SORTIS [Suspect]
     Indication: HYPERLIPIDAEMIA
  3. METOPROLOL SUCCINATE [Concomitant]
     Route: 048
  4. ASPIRIN [Concomitant]
     Route: 048
  5. ALL OTHER THERAPEUTIC PRODUCTS [Concomitant]
     Route: 048
     Dates: start: 19990101, end: 20060901

REACTIONS (2)
  - PROSTATE CANCER [None]
  - PULMONARY FIBROSIS [None]
